FAERS Safety Report 25459491 (Version 3)
Quarter: 2025Q3

REPORT INFORMATION
  Report Type: Spontaneous
  Country: JP (occurrence: JP)
  Receive Date: 20250620
  Receipt Date: 20250725
  Transmission Date: 20251021
  Serious: Yes (Hospitalization, Other)
  Sender: CSL BEHRING
  Company Number: JP-BEH-2025209598

PATIENT
  Age: 81 Year
  Sex: Male

DRUGS (2)
  1. KORSUVA [Suspect]
     Active Substance: DIFELIKEFALIN ACETATE
     Indication: Pruritus
     Route: 042
     Dates: start: 20250513, end: 20250529
  2. ROXADUSTAT [Suspect]
     Active Substance: ROXADUSTAT
     Route: 065

REACTIONS (5)
  - Hepatic function abnormal [Unknown]
  - Central hypothyroidism [Unknown]
  - Cognitive disorder [Unknown]
  - Fall [Unknown]
  - Blood thyroid stimulating hormone decreased [Unknown]

NARRATIVE: CASE EVENT DATE: 20250501
